FAERS Safety Report 10888806 (Version 1)
Quarter: 2015Q1

REPORT INFORMATION
  Report Type: Spontaneous
  Country: US (occurrence: US)
  Receive Date: 20150305
  Receipt Date: 20150305
  Transmission Date: 20150721
  Serious: Yes (Other)
  Sender: FDA-Public Use
  Company Number: US-BAYER-2015-031409

PATIENT
  Age: 59 Year
  Sex: Male

DRUGS (2)
  1. SOTALOL. [Suspect]
     Active Substance: SOTALOL
     Indication: ATRIAL FIBRILLATION
  2. DOFETILIDE [Suspect]
     Active Substance: DOFETILIDE

REACTIONS (2)
  - Bradycardia [None]
  - Tachycardia [None]
